FAERS Safety Report 21890614 (Version 1)
Quarter: 2023Q1

REPORT INFORMATION
  Report Type: Spontaneous
  Country: US (occurrence: US)
  Receive Date: 20230120
  Receipt Date: 20230120
  Transmission Date: 20230418
  Serious: Yes (Other)
  Sender: FDA-Public Use
  Company Number: US-drreddys-SPO/USA/23/0159955

PATIENT
  Age: 65 Year
  Sex: Female

DRUGS (6)
  1. HEPARIN SODIUM [Suspect]
     Active Substance: HEPARIN SODIUM
     Indication: Septic embolus
  2. DEXAMETHASONE [Concomitant]
     Active Substance: DEXAMETHASONE
     Indication: COVID-19
  3. AZTREONAM [Concomitant]
     Active Substance: AZTREONAM
     Indication: COVID-19
  4. REMDESIVIR [Concomitant]
     Active Substance: REMDESIVIR
     Indication: COVID-19
  5. FLUCYTOSINE [Concomitant]
     Active Substance: FLUCYTOSINE
     Indication: Cryptococcosis
  6. MICAFUNGIN [Concomitant]
     Active Substance: MICAFUNGIN
     Indication: Cryptococcosis

REACTIONS (1)
  - Heparin-induced thrombocytopenia [Unknown]
